FAERS Safety Report 5538301-6 (Version None)
Quarter: 2007Q4

REPORT INFORMATION
  Report Type: 
  Country: None (occurrence: None)
  Receive Date: 20071123
  Receipt Date: 20070510
  Transmission Date: 20080405
  Serious: Yes (Hospitalization)
  Sender: FDA-Public Use
  Company Number: US-JNJFOC-20070502833

PATIENT
  Age: 77 Year
  Sex: Male

DRUGS (2)
  1. LEVAQUIN [Suspect]
     Indication: PROSTATITIS
     Dosage: , 1 IN 1 DAY,
     Dates: start: 20070101, end: 20070101
  2. CIPRO [Suspect]
     Indication: PROSTATITIS
     Dosage: , 1 IN 1 DAY,

REACTIONS (1)
  - TENDON RUPTURE [None]
